FAERS Safety Report 22355240 (Version 5)
Quarter: 2024Q1

REPORT INFORMATION
  Report Type: Report from Study
  Country: CA (occurrence: CA)
  Receive Date: 20230523
  Receipt Date: 20240104
  Transmission Date: 20240410
  Serious: Yes (Other)
  Sender: FDA-Public Use
  Company Number: CA-JNJFOC-20230379117

PATIENT
  Age: 24 Year
  Sex: Female
  Weight: 92 kg

DRUGS (7)
  1. REMICADE [Suspect]
     Active Substance: INFLIXIMAB
     Indication: Colitis ulcerative
     Route: 041
     Dates: start: 20230215
  2. REMICADE [Suspect]
     Active Substance: INFLIXIMAB
     Dosage: ON 30-MAR-2023, THE PATIENT RECEIVED THE 3RD REMICADE INFUSION AND PARTIAL MAYO COMPLETED.
     Route: 041
     Dates: start: 2023
  3. REMICADE [Suspect]
     Active Substance: INFLIXIMAB
     Route: 041
     Dates: start: 2023
  4. REMICADE [Suspect]
     Active Substance: INFLIXIMAB
     Dosage: ON 11-JUL-2023 PATIENT HAD 5TH INFUSION OF 700 MG INFLIXIMAB AND PARTIAL MAYO COMPLETED.
     Route: 041
     Dates: start: 2023
  5. PREDNISONE [Concomitant]
     Active Substance: PREDNISONE
     Indication: Product used for unknown indication
     Route: 048
  6. PREDNISONE [Concomitant]
     Active Substance: PREDNISONE
     Dosage: DAILY
     Route: 065
  7. PREDNISONE [Concomitant]
     Active Substance: PREDNISONE
     Dosage: DAILY
     Route: 065
     Dates: start: 20230611

REACTIONS (4)
  - Clostridium difficile infection [Recovering/Resolving]
  - Colitis ulcerative [Not Recovered/Not Resolved]
  - General physical health deterioration [Unknown]
  - Off label use [Unknown]

NARRATIVE: CASE EVENT DATE: 20230101
